FAERS Safety Report 17741472 (Version 1)
Quarter: 2020Q2

REPORT INFORMATION
  Report Type: Spontaneous
  Country: US (occurrence: US)
  Receive Date: 20200504
  Receipt Date: 20200504
  Transmission Date: 20200714
  Serious: Yes (Other)
  Sender: FDA-Public Use
  Company Number: US-PERRIGO-20US006198

PATIENT
  Sex: Male

DRUGS (1)
  1. RANITIDINE HYDROCHLORIDE. [Suspect]
     Active Substance: RANITIDINE HYDROCHLORIDE
     Indication: PRODUCT USED FOR UNKNOWN INDICATION
     Dosage: UNKNOWN, QD
     Route: 048
     Dates: start: 2004, end: 201910

REACTIONS (1)
  - Bladder cancer [Unknown]

NARRATIVE: CASE EVENT DATE: 201705
